FAERS Safety Report 6585557-7 (Version None)
Quarter: 2010Q1

REPORT INFORMATION
  Report Type: 
  Country: None (occurrence: None)
  Receive Date: 20100201
  Receipt Date: 20090127
  Transmission Date: 20100710
  Serious: Yes (Hospitalization, Other)
  Sender: FDA-Public Use
  Company Number: 8031585

PATIENT
  Sex: Female
  Weight: 81.8 kg

DRUGS (5)
  1. KEPPRA [Suspect]
     Dates: start: 20070701, end: 20070901
  2. REBIF [Suspect]
     Indication: MULTIPLE SCLEROSIS
     Dosage: 44 UG 3X/WEEK SUBCUTANEOUS : 44 UG 3X/WEEK SUBCUTANEOUS
     Route: 058
     Dates: start: 20080402, end: 20081201
  3. REBIF [Suspect]
     Indication: MULTIPLE SCLEROSIS
     Dosage: 44 UG 3X/WEEK SUBCUTANEOUS : 44 UG 3X/WEEK SUBCUTANEOUS
     Route: 058
     Dates: start: 20080302
  4. REBIF [Suspect]
     Indication: MULTIPLE SCLEROSIS
     Dosage: 44 UG 3X/WEEK SUBCUTANEOUS : 44 UG 3X/WEEK SUBCUTANEOUS
     Route: 058
     Dates: start: 20081201
  5. ORTHO-NOVUM [Concomitant]

REACTIONS (1)
  - PANCREATITIS [None]
